FAERS Safety Report 11610741 (Version 1)
Quarter: 2015Q4

REPORT INFORMATION
  Report Type: Spontaneous
  Country: US (occurrence: US)
  Receive Date: 20151008
  Receipt Date: 20151008
  Transmission Date: 20160304
  Serious: No
  Sender: FDA-Public Use
  Company Number: US-B.I. PHARMACEUTICALS,INC./RIDGEFIELD-2015-BI-53160BP

PATIENT
  Sex: Male

DRUGS (1)
  1. ZANTAC [Suspect]
     Active Substance: RANITIDINE HYDROCHLORIDE
     Indication: DIVERTICULITIS
     Dosage: 150 MG
     Route: 048

REACTIONS (3)
  - Dysgeusia [Not Recovered/Not Resolved]
  - Off label use [Unknown]
  - Incorrect drug administration duration [Not Recovered/Not Resolved]
